FAERS Safety Report 14316725 (Version 3)
Quarter: 2018Q1

REPORT INFORMATION
  Report Type: Spontaneous
  Country: US (occurrence: US)
  Receive Date: 20171222
  Receipt Date: 20180126
  Transmission Date: 20180509
  Serious: No
  Sender: FDA-Public Use
  Company Number: US-PFIZER INC-2017543244

PATIENT
  Age: 78 Year
  Sex: Female
  Weight: 70 kg

DRUGS (1)
  1. IBRANCE [Suspect]
     Active Substance: PALBOCICLIB
     Indication: BREAST CANCER FEMALE
     Dosage: 125 MG, CYCLIC (DAY1-21 Q 28 DAYS)
     Route: 048
     Dates: start: 20171129

REACTIONS (5)
  - Abdominal discomfort [Unknown]
  - Nausea [Recovered/Resolved]
  - White blood cell count decreased [Unknown]
  - General physical condition abnormal [Unknown]
  - Fall [Unknown]

NARRATIVE: CASE EVENT DATE: 2017
